FAERS Safety Report 18274085 (Version 16)
Quarter: 2022Q2

REPORT INFORMATION
  Report Type: Report from Study
  Country: AR (occurrence: AR)
  Receive Date: 20200916
  Receipt Date: 20220516
  Transmission Date: 20220721
  Serious: Yes (Hospitalization, Other)
  Sender: FDA-Public Use
  Company Number: NVSC2020AR250376

PATIENT
  Age: 8 Year
  Sex: Female
  Weight: 41 kg

DRUGS (4)
  1. ILARIS [Suspect]
     Active Substance: CANAKINUMAB
     Indication: Familial mediterranean fever
     Dosage: 150 MG, QMO
     Route: 058
     Dates: start: 20200325
  2. ILARIS [Suspect]
     Active Substance: CANAKINUMAB
     Dosage: 300 MG, QMO (300 MG/2 VIALS)
     Route: 058
  3. ILARIS [Suspect]
     Active Substance: CANAKINUMAB
     Dosage: 200 MG, QMO
     Route: 058
     Dates: start: 20200325
  4. ILARIS [Suspect]
     Active Substance: CANAKINUMAB
     Dosage: 150 MG, QMO
     Route: 058

REACTIONS (39)
  - Mucosal inflammation [Unknown]
  - Bronchiectasis [Unknown]
  - Skin reaction [Unknown]
  - Diarrhoea [Unknown]
  - Vomiting [Unknown]
  - Peritonitis [Not Recovered/Not Resolved]
  - Hypersensitivity [Not Recovered/Not Resolved]
  - Haematochezia [Unknown]
  - Haemothorax [Unknown]
  - Neuritis [Unknown]
  - Diarrhoea haemorrhagic [Not Recovered/Not Resolved]
  - Pneumonia [Unknown]
  - Adrenal insufficiency [Recovered/Resolved]
  - Synovial cyst [Not Recovered/Not Resolved]
  - Vasculitis [Unknown]
  - Haematoma [Not Recovered/Not Resolved]
  - Motor dysfunction [Unknown]
  - Pain in extremity [Unknown]
  - White blood cell count decreased [Not Recovered/Not Resolved]
  - Feeling abnormal [Unknown]
  - Arthritis [Unknown]
  - Condition aggravated [Not Recovered/Not Resolved]
  - Hypercalcaemia [Unknown]
  - Bone metabolism disorder [Unknown]
  - Pneumonitis [Unknown]
  - Urticaria [Recovered/Resolved]
  - Rhinitis [Unknown]
  - C-reactive protein increased [Unknown]
  - Illness [Unknown]
  - Cardiac disorder [Unknown]
  - Condition aggravated [Unknown]
  - COVID-19 [Recovered/Resolved]
  - Pain [Unknown]
  - Familial mediterranean fever [Unknown]
  - COVID-19 [Unknown]
  - Injection site inflammation [Recovered/Resolved]
  - Inflammation [Not Recovered/Not Resolved]
  - Drug ineffective [Not Recovered/Not Resolved]
  - Product supply issue [Unknown]

NARRATIVE: CASE EVENT DATE: 20200301
